FAERS Safety Report 14457708 (Version 1)
Quarter: 2018Q1

REPORT INFORMATION
  Report Type: Spontaneous
  Country: US (occurrence: US)
  Receive Date: 20180130
  Receipt Date: 20180130
  Transmission Date: 20180509
  Serious: No
  Sender: FDA-Public Use
  Company Number: US-PFIZER INC-2018040814

PATIENT
  Age: 55 Year
  Sex: Female

DRUGS (2)
  1. LANREOTIDE [Suspect]
     Active Substance: LANREOTIDE
     Dosage: 60 MG, UNK [EVERY FOUR WEEKS]
  2. PEGVISOMANT [Suspect]
     Active Substance: PEGVISOMANT
     Dosage: UNK UNK, DAILY

REACTIONS (1)
  - Headache [Recovered/Resolved]
